FAERS Safety Report 5512714-0 (Version None)
Quarter: 2007Q4

REPORT INFORMATION
  Report Type: 
  Country: None (occurrence: None)
  Receive Date: 20071112
  Receipt Date: 20071106
  Transmission Date: 20080405
  Serious: Yes (Other)
  Sender: FDA-Public Use
  Company Number: PHEH2007US14478

PATIENT
  Age: 35 Year
  Sex: Male
  Weight: 68.027 kg

DRUGS (1)
  1. LAMISIL [Suspect]
     Indication: NAIL TINEA
     Dosage: 250 MG, QD
     Route: 048

REACTIONS (5)
  - ABDOMINAL DISCOMFORT [None]
  - HAEMORRHAGE [None]
  - LIMB DISCOMFORT [None]
  - MUSCLE SPASMS [None]
  - PAIN IN EXTREMITY [None]
